FAERS Safety Report 7484930-2 (Version None)
Quarter: 2011Q2

REPORT INFORMATION
  Report Type: 
  Country: None (occurrence: None)
  Receive Date: 20110517
  Receipt Date: 20110502
  Transmission Date: 20111010
  Serious: Yes (Hospitalization)
  Sender: FDA-Public Use
  Company Number: B0719285A

PATIENT
  Sex: Female
  Weight: 88 kg

DRUGS (3)
  1. CISPLATIN [Suspect]
     Indication: NEOPLASM
     Dosage: 600MG CUMULATIVE DOSE
     Route: 042
     Dates: start: 20110208
  2. PAZOPANIB [Suspect]
     Indication: NEOPLASM
     Dosage: 17600MG CUMULATIVE DOSE
     Route: 048
     Dates: start: 20110207
  3. VOGALENE [Concomitant]
     Indication: NAUSEA
     Route: 048
     Dates: start: 20110301

REACTIONS (1)
  - VENA CAVA THROMBOSIS [None]
